FAERS Safety Report 19813016 (Version 1)
Quarter: 2021Q3

REPORT INFORMATION
  Report Type: Spontaneous
  Country: US (occurrence: US)
  Receive Date: 20210909
  Receipt Date: 20210909
  Transmission Date: 20211014
  Serious: No
  Sender: FDA-Public Use
  Company Number: US-PERRIGO-20US016492

PATIENT
  Age: 75 Year
  Sex: Female
  Weight: 70.3 kg

DRUGS (2)
  1. MINOXIDIL. [Suspect]
     Active Substance: MINOXIDIL
     Indication: ALOPECIA
     Dosage: 1 ML, SINGLE
     Route: 061
     Dates: start: 20201113, end: 20201113
  2. ANTI?ASTHMATICS [Concomitant]
     Active Substance: UNSPECIFIED INGREDIENT
     Indication: ASTHMA
     Dosage: UNK
     Route: 065

REACTIONS (4)
  - Off label use [Recovered/Resolved]
  - Product administered at inappropriate site [Recovered/Resolved]
  - Application site paraesthesia [Recovered/Resolved]
  - Hypersensitivity [Recovered/Resolved]

NARRATIVE: CASE EVENT DATE: 20201113
